FAERS Safety Report 11080674 (Version 1)
Quarter: 2015Q2

REPORT INFORMATION
  Report Type: Spontaneous
  Country: US (occurrence: None)
  Receive Date: 20150430
  Receipt Date: 20150430
  Transmission Date: 20150821
  Serious: No
  Sender: FDA-Public Use
  Company Number: None

PATIENT
  Age: 68 Year
  Sex: Female
  Weight: 66.23 kg

DRUGS (8)
  1. LISINOPRIL. [Concomitant]
     Active Substance: LISINOPRIL
  2. COREG [Concomitant]
     Active Substance: CARVEDILOL
  3. TRAZODONE [Suspect]
     Active Substance: TRAZODONE HYDROCHLORIDE
     Indication: SLEEP DISORDER
     Route: 048
  4. HTCZ [Concomitant]
  5. EFFEXOR [Concomitant]
     Active Substance: VENLAFAXINE HYDROCHLORIDE
  6. NIFEDEPINE [Concomitant]
  7. LYRICA [Concomitant]
     Active Substance: PREGABALIN
  8. MVI [Concomitant]
     Active Substance: VITAMINS

REACTIONS (1)
  - Faecal incontinence [None]

NARRATIVE: CASE EVENT DATE: 20150427
